FAERS Safety Report 10248636 (Version 2)
Quarter: 2014Q2

REPORT INFORMATION
  Report Type: Report from Study
  Country: US (occurrence: US)
  Receive Date: 20140620
  Receipt Date: 20140620
  Transmission Date: 20141212
  Serious: No
  Sender: FDA-Public Use
  Company Number: PHEH2014US009791

PATIENT
  Age: 62 Year
  Sex: Female

DRUGS (17)
  1. TASIGNA [Suspect]
     Indication: CHRONIC MYELOID LEUKAEMIA
     Dosage: 300 MG, UNK
     Route: 048
     Dates: start: 20140319, end: 20140430
  2. ASA [Concomitant]
     Dosage: 81 MG, UNK
  3. ATORVASTATIN [Concomitant]
     Dosage: 80 MG, UNK
  4. CLONAZEPAM [Concomitant]
     Dosage: 1 MG, UNK
  5. CLOPIDOGREL [Concomitant]
     Dosage: 75 MG, UNK
  6. DOXEPIN [Concomitant]
     Dosage: UNK UKN, UNK
  7. LASIX [Concomitant]
     Dosage: UNK UKN, UNK
  8. FLUOXETINE [Concomitant]
     Dosage: UNK UKN, UNK
  9. CARISOPRODOL [Concomitant]
     Dosage: 1 UKN, UNK
  10. GABAPENTIN [Concomitant]
     Dosage: UNK UKN, UNK
  11. INSULIN [Concomitant]
     Dosage: UNK UKN, UNK
  12. LANSOPRAZOL [Concomitant]
     Dosage: UNK UKN, UNK
  13. LOSARTAN [Concomitant]
     Dosage: UNK UKN, UNK
  14. METFORMIN [Concomitant]
     Dosage: UNK UKN, UNK
  15. NITRO [Concomitant]
     Dosage: UNK UKN, UNK
  16. KCL [Concomitant]
     Dosage: UNK UKN, UNK
  17. SPIRONOLACTON [Concomitant]
     Dosage: UNK UKN, UNK

REACTIONS (1)
  - Rash [Recovering/Resolving]
